FAERS Safety Report 18385561 (Version 1)
Quarter: 2020Q4

REPORT INFORMATION
  Report Type: Spontaneous
  Country: ES (occurrence: ES)
  Receive Date: 20201015
  Receipt Date: 20201015
  Transmission Date: 20210114
  Serious: Yes (Hospitalization)
  Sender: FDA-Public Use
  Company Number: ES-JNJFOC-20201007897

PATIENT
  Age: 39 Year
  Sex: Female

DRUGS (3)
  1. NOLOTIL                            /00473101/ [Suspect]
     Active Substance: METAMIZOLE\PROPOXYPHENE
     Indication: PAIN
     Dosage: 3 BLISTERS IN THAT PERIOD; IN TOTAL?DRUG START PERIOD: 31 (DAYS)?DRUG LAST PERIOD: 27 (DAYS)?NOLOTIL
     Route: 065
     Dates: start: 20190206, end: 20190210
  2. IBUPROFEN. [Suspect]
     Active Substance: IBUPROFEN
     Indication: PAIN
     Dosage: 600MG EVERY 8 HOURS?DRUG START PERIOD: 31 (DAYS)?DRUG LAST PERIOD: 27 (DAYS)
     Route: 048
     Dates: start: 20190206, end: 20190210
  3. MEPIVACAINA [Suspect]
     Active Substance: MEPIVACAINE HYDROCHLORIDE
     Indication: DENTAL OPERATION
     Dosage: SP?DRUG START PERIOD: 257 (DAYS)?DRUG LAST PERIOD: 257 (DAYS)
     Route: 065
     Dates: start: 20180625, end: 20180625

REACTIONS (1)
  - Hepatic failure [Recovered/Resolved]

NARRATIVE: CASE EVENT DATE: 20190308
